FAERS Safety Report 9363598 (Version 2)
Quarter: 2013Q4

REPORT INFORMATION
  Report Type: Spontaneous
  Country: DK (occurrence: DK)
  Receive Date: 20130624
  Receipt Date: 20131226
  Transmission Date: 20140711
  Serious: Yes (Hospitalization)
  Sender: FDA-Public Use
  Company Number: PHHY2013DK063391

PATIENT
  Age: 73 Year
  Sex: Male

DRUGS (3)
  1. ZOMETA [Suspect]
     Indication: METASTASES TO BONE
     Dosage: 4 MG\100 ML
     Route: 042
     Dates: start: 200710, end: 201210
  2. XGEVA [Suspect]
     Indication: METASTASES TO BONE
     Dosage: 120 MG, UNK
     Route: 058
     Dates: start: 201210
  3. PREDNISOLON [Concomitant]

REACTIONS (1)
  - Osteonecrosis of jaw [Not Recovered/Not Resolved]
